FAERS Safety Report 7933177-1 (Version None)
Quarter: 2011Q4

REPORT INFORMATION
  Report Type: 
  Country: None (occurrence: None)
  Receive Date: 20111122
  Receipt Date: 20111117
  Transmission Date: 20120403
  Serious: Yes (Life-Threatening, Hospitalization)
  Sender: FDA-Public Use
  Company Number: DE-JNJFOC-20111100659

PATIENT
  Sex: Male
  Weight: 12 kg

DRUGS (1)
  1. CONCERTA [Suspect]
     Indication: ACCIDENTAL EXPOSURE
     Route: 048
     Dates: start: 20111027, end: 20111027

REACTIONS (5)
  - RESTLESSNESS [None]
  - BODY TEMPERATURE INCREASED [None]
  - ACCIDENTAL EXPOSURE [None]
  - DAYDREAMING [None]
  - AGITATION [None]
